FAERS Safety Report 6609957-1 (Version None)
Quarter: 2010Q1

REPORT INFORMATION
  Report Type: 
  Country: None (occurrence: None)
  Receive Date: 20100302
  Receipt Date: 20100222
  Transmission Date: 20100710
  Serious: Yes (Other)
  Sender: FDA-Public Use
  Company Number: US-ASTRAZENECA-2010SE07567

PATIENT
  Age: 53 Year
  Sex: Female

DRUGS (4)
  1. CRESTOR [Suspect]
     Route: 048
     Dates: start: 20080401, end: 20091101
  2. CRESTOR [Suspect]
     Route: 048
     Dates: start: 20091101
  3. ASPIRIN [Concomitant]
  4. PLAVIX [Concomitant]

REACTIONS (2)
  - BLUE TOE SYNDROME [None]
  - PERIPHERAL EMBOLISM [None]
